FAERS Safety Report 13025978 (Version 1)
Quarter: 2016Q4

REPORT INFORMATION
  Report Type: Spontaneous
  Country: US (occurrence: US)
  Receive Date: 20161213
  Receipt Date: 20161213
  Transmission Date: 20170207
  Serious: Yes (Death)
  Sender: FDA-Public Use
  Company Number: None

PATIENT
  Age: 17 Year
  Sex: Male
  Weight: 45.7 kg

DRUGS (3)
  1. CYCLOPHOSPHAMIDE. [Concomitant]
     Active Substance: CYCLOPHOSPHAMIDE
  2. FLUDARABINE [Suspect]
     Active Substance: FLUDARABINE PHOSPHATE
     Indication: STEM CELL TRANSPLANT
     Dosage: 30 MG/M 2 MILLIGRAM(S) SQ. METER ?INTRAVENOUS (NOT OTHERWISE SPECIFIED)
     Route: 042
     Dates: start: 20151231, end: 20160105
  3. RABBITT ATG [Concomitant]

REACTIONS (18)
  - Inflammation [None]
  - Asthenia [None]
  - Diplegia [None]
  - Blindness [None]
  - Leukoencephalopathy [None]
  - Respiratory failure [None]
  - Seizure [None]
  - Myelitis transverse [None]
  - Encephalopathy [None]
  - Klebsiella test positive [None]
  - Urinary tract infection [None]
  - Bradycardia [None]
  - Sensory loss [None]
  - Protein total increased [None]
  - Pneumonia [None]
  - Blood pressure abnormal [None]
  - Muscular weakness [None]
  - Sensory disturbance [None]

NARRATIVE: CASE EVENT DATE: 20151231
